FAERS Safety Report 6041795-3 (Version None)
Quarter: 2009Q1

REPORT INFORMATION
  Report Type: 
  Country: None (occurrence: None)
  Receive Date: 20090116
  Receipt Date: 20090108
  Transmission Date: 20090719
  Serious: Yes (Hospitalization)
  Sender: FDA-Public Use
  Company Number: FR-AVENTIS-200910044FR

PATIENT
  Age: 47 Year
  Sex: Female

DRUGS (4)
  1. KETEK [Suspect]
     Route: 048
     Dates: start: 20081219
  2. SINGULAIR [Concomitant]
  3. CELESTENE                          /00008501/ [Concomitant]
  4. EFFERALGAN                         /00020001/ [Concomitant]
     Dates: start: 20081219

REACTIONS (1)
  - HEPATITIS [None]
